FAERS Safety Report 11176162 (Version 4)
Quarter: 2015Q2

REPORT INFORMATION
  Report Type: Report from Study
  Country: HU (occurrence: HU)
  Receive Date: 20150609
  Receipt Date: 20150623
  Transmission Date: 20150821
  Serious: Yes (Death, Hospitalization)
  Sender: FDA-Public Use
  Company Number: HU-ABBVIE-15P-076-1403728-00

PATIENT
  Age: 62 Year
  Sex: Female

DRUGS (2)
  1. DICLOFENAC (FORTEDOL) [Concomitant]
     Indication: PAIN MANAGEMENT
     Route: 048
  2. DUODOPA [Suspect]
     Active Substance: CARBIDOPA\LEVODOPA
     Indication: PARKINSON^S DISEASE
     Dosage: MORNING: 11.5ML;CONTINUOUS: 5ML/H;EXTRA: 2 ML
     Route: 050
     Dates: start: 20140414

REACTIONS (4)
  - Stoma site extravasation [Recovering/Resolving]
  - Granuloma [Recovering/Resolving]
  - Death [Fatal]
  - General physical health deterioration [Unknown]

NARRATIVE: CASE EVENT DATE: 201409
